FAERS Safety Report 4915950-7 (Version None)
Quarter: 2006Q1

REPORT INFORMATION
  Report Type: 
  Country: None (occurrence: None)
  Receive Date: 20060214
  Receipt Date: 20060130
  Transmission Date: 20060701
  Serious: Yes (Other)
  Sender: FDA-Public Use
  Company Number: US200601005436

PATIENT
  Age: 77 Year
  Sex: Male

DRUGS (3)
  1. HUMULIN L [Suspect]
     Indication: DIABETES MELLITUS
     Dosage: UNK
     Route: 065
     Dates: start: 19940101, end: 20060101
  2. HUMULIN N [Suspect]
     Indication: DIABETES MELLITUS
     Dosage: UNK
     Route: 065
     Dates: start: 20060101
  3. HUMULIN R [Suspect]
     Indication: DIABETES MELLITUS
     Dosage: UNK
     Route: 065
     Dates: start: 19940101

REACTIONS (2)
  - CONSTIPATION [None]
  - DIALYSIS [None]
